FAERS Safety Report 17227188 (Version 1)
Quarter: 2020Q1

REPORT INFORMATION
  Report Type: Spontaneous
  Country: CA (occurrence: CA)
  Receive Date: 20200103
  Receipt Date: 20200103
  Transmission Date: 20200409
  Serious: Yes (Other)
  Sender: FDA-Public Use
  Company Number: CA-AUROBINDO-AUR-APL-2019-108261

PATIENT
  Age: 68 Year
  Sex: Male

DRUGS (7)
  1. CYCLOSPORINE. [Suspect]
     Active Substance: CYCLOSPORINE
     Indication: IMMUNOSUPPRESSION
     Dosage: 175 MICROGRAM
     Route: 065
  2. GANCICLOVIR INJECTION [Suspect]
     Active Substance: GANCICLOVIR
     Dosage: UNK
     Route: 042
  3. MYCOPHENOLIC ACID. [Suspect]
     Active Substance: MYCOPHENOLIC ACID
     Indication: IMMUNOSUPPRESSION
     Dosage: 360 MILLIGRAM, ONCE A DAY
     Route: 065
  4. GANCICLOVIR INJECTION [Suspect]
     Active Substance: GANCICLOVIR
     Indication: ANTIVIRAL PROPHYLAXIS
     Dosage: 5 MILLIGRAM/KILOGRAM, TWO TIMES A DAY
     Route: 042
  5. FOSCARNET SODIUM. [Concomitant]
     Active Substance: FOSCARNET SODIUM
     Indication: PRODUCT USED FOR UNKNOWN INDICATION
     Dosage: UNK
     Route: 065
  6. VALGANCICLOVIR. [Suspect]
     Active Substance: VALGANCICLOVIR
     Indication: ANTIVIRAL PROPHYLAXIS
     Dosage: 5 MILLIGRAM/KILOGRAM, TWO TIMES A DAY
     Route: 042
  7. PREDNISONE. [Suspect]
     Active Substance: PREDNISONE
     Indication: IMMUNOSUPPRESSION
     Dosage: 10 MILLIGRAM, ONCE A DAY
     Route: 065

REACTIONS (2)
  - Cytomegalovirus viraemia [Recovered/Resolved]
  - Drug ineffective [Recovered/Resolved]
